FAERS Safety Report 5956353-6 (Version None)
Quarter: 2008Q4

REPORT INFORMATION
  Report Type: 
  Country: None (occurrence: None)
  Receive Date: 20081112
  Receipt Date: 20081029
  Transmission Date: 20090506
  Serious: Yes (Life-Threatening, Disabling)
  Sender: FDA-Public Use
  Company Number: GXKR2008US10312

PATIENT
  Age: 52 Year
  Sex: Male

DRUGS (7)
  1. CARVEDILOL [Suspect]
     Dosage: 6.23 MG, BID
  2. SPIRONOLACTONE [Suspect]
     Dosage: 25 MG, QW3
  3. FUROSEMIDE [Suspect]
     Dosage: 80 MG, QD
  4. LISINOPRIL [Suspect]
     Dosage: 20 MG, QD
  5. DEXAMETHASONE [Suspect]
     Dosage: 5 MG, BID
  6. LIDOCAINE [Suspect]
     Indication: ORAL PAIN
     Dosage: ORAL
     Route: 048
  7. IBUPROFEN [Suspect]
     Indication: HEADACHE
     Dosage: 800 MG, PRN

REACTIONS (15)
  - ACTIVITIES OF DAILY LIVING IMPAIRED [None]
  - ADHESION [None]
  - BLINDNESS [None]
  - BREATH ODOUR [None]
  - COMA [None]
  - CONJUNCTIVAL SCAR [None]
  - ORAL PAIN [None]
  - PAIN [None]
  - POOR PERSONAL HYGIENE [None]
  - SCAR [None]
  - SEPSIS [None]
  - SKIN DEPIGMENTATION [None]
  - SPEECH DISORDER [None]
  - SYMBLEPHARON [None]
  - TOXIC EPIDERMAL NECROLYSIS [None]
